FAERS Safety Report 10682645 (Version 3)
Quarter: 2015Q1

REPORT INFORMATION
  Report Type: Spontaneous
  Country: FR (occurrence: FR)
  Receive Date: 20141230
  Receipt Date: 20150203
  Transmission Date: 20150720
  Serious: Yes (Hospitalization)
  Sender: FDA-Public Use
  Company Number: FR-PFIZER INC-2014355322

PATIENT
  Age: 63 Year
  Sex: Male
  Weight: 57 kg

DRUGS (17)
  1. MEDROL [Suspect]
     Active Substance: METHYLPREDNISOLONE
     Dosage: 100 MG, UNK
     Dates: start: 20140620, end: 20140622
  2. PARACETAMOL [Concomitant]
     Active Substance: ACETAMINOPHEN
  3. FLUOROURACILE PFIZER [Suspect]
     Active Substance: FLUOROURACIL
     Dosage: 4900 MG
     Route: 041
     Dates: end: 20140621
  4. KARDEGIC [Concomitant]
     Active Substance: ASPIRIN LYSINE
     Dosage: 75 MG, 1X/DAY
  5. ERBITUX [Suspect]
     Active Substance: CETUXIMAB
     Indication: COLON CANCER METASTATIC
     Dosage: 880 MG, UNK
     Dates: start: 20131126
  6. POLARAMINE [Suspect]
     Active Substance: DEXCHLORPHENIRAMINE MALEATE
     Dosage: 5 MG, UNK
     Route: 042
     Dates: start: 20140619
  7. IRINOTECAN MYLAN [Suspect]
     Active Substance: IRINOTECAN
     Indication: COLON CANCER METASTATIC
     Dosage: UNK
     Dates: start: 20131126
  8. FLUOROURACILE PFIZER [Suspect]
     Active Substance: FLUOROURACIL
     Indication: COLON CANCER METASTATIC
     Dosage: UNK
     Route: 041
     Dates: start: 20131126
  9. METHYLPREDNISOLONE MYLAN [Suspect]
     Active Substance: METHYLPREDNISOLONE
     Dosage: 100 MG, UNK
     Route: 041
     Dates: start: 20140619
  10. CALCIUM LEVOFOLINATE WINTHROP [Suspect]
     Active Substance: LEVOLEUCOVORIN CALCIUM
     Dosage: 350 MG, UNK
     Route: 041
  11. BISOPROLOL HEMIFUMARATE [Concomitant]
     Active Substance: BISOPROLOL FUMARATE
  12. CALCIUM LEVOFOLINATE WINTHROP [Suspect]
     Active Substance: LEVOLEUCOVORIN CALCIUM
     Indication: COLON CANCER METASTATIC
     Dosage: UNK
     Dates: start: 20131126
  13. TAHOR [Concomitant]
     Active Substance: ATORVASTATIN CALCIUM
     Dosage: 80 MG, 1X/DAY
  14. ONDANSETRON [Suspect]
     Active Substance: ONDANSETRON
     Dosage: 8 MG, UNK
     Route: 041
     Dates: start: 20140619
  15. MAGNESIUM SULFATE LAVOISIER [Suspect]
     Active Substance: MAGNESIUM SULFATE
     Dosage: 30 ML, UNK
     Route: 041
     Dates: start: 20140619
  16. PRIMPERAN [Concomitant]
     Active Substance: METOCLOPRAMIDE HYDROCHLORIDE
     Dosage: UNK, AS NEEDED
  17. IRINOTECAN MYLAN [Suspect]
     Active Substance: IRINOTECAN
     Dosage: 320 MG, UNK
     Route: 041

REACTIONS (5)
  - Acute kidney injury [Recovered/Resolved]
  - Weight decreased [Recovered/Resolved]
  - Dehydration [Recovered/Resolved]
  - Vomiting [Recovered/Resolved]
  - Diarrhoea [Recovered/Resolved]

NARRATIVE: CASE EVENT DATE: 20140620
